FAERS Safety Report 8896459 (Version 1)
Quarter: 2012Q4

REPORT INFORMATION
  Report Type: Spontaneous
  Country: CN (occurrence: None)
  Receive Date: 20121102
  Receipt Date: 20121102
  Transmission Date: 20130627
  Serious: Yes (Hospitalization)
  Sender: FDA-Public Use
  Company Number: 2012P1062302

PATIENT
  Age: 72 Year
  Sex: Female
  Weight: 55.88 kg

DRUGS (1)
  1. CEFTAZIDIME [Suspect]
     Route: 037
     Dates: start: 20110129, end: 20110129

REACTIONS (5)
  - Loss of consciousness [None]
  - Schizophreniform disorder [None]
  - Pyrexia [None]
  - Dysphoria [None]
  - Unevaluable event [None]
